FAERS Safety Report 14056704 (Version 1)
Quarter: 2017Q4

REPORT INFORMATION
  Report Type: Report from Study
  Country: US (occurrence: US)
  Receive Date: 20171006
  Receipt Date: 20171006
  Transmission Date: 20180321
  Serious: Yes (Other)
  Sender: FDA-Public Use
  Company Number: US-GILEAD-2017-0296757

PATIENT
  Age: 13 Day
  Sex: Male
  Weight: 1.76 kg

DRUGS (16)
  1. METRONIDAZOLE. [Concomitant]
     Active Substance: METRONIDAZOLE
  2. MECLIZINE [Concomitant]
     Active Substance: MECLIZINE HYDROCHLORIDE
  3. OXYTOCIN. [Concomitant]
     Active Substance: OXYTOCIN
  4. LEDIPASVIR/SOFOSBUVIR [Suspect]
     Active Substance: LEDIPASVIR\SOFOSBUVIR
     Indication: HEPATITIS C
     Dosage: 1 DF, UNK
     Route: 064
     Dates: start: 20161206
  5. CLINDAMYCIN. [Concomitant]
     Active Substance: CLINDAMYCIN
  6. TRIUMEQ [Concomitant]
     Active Substance: ABACAVIR SULFATE\DOLUTEGRAVIR SODIUM\LAMIVUDINE
  7. NICOTINE. [Concomitant]
     Active Substance: NICOTINE
  8. FLUCONAZOLE. [Concomitant]
     Active Substance: FLUCONAZOLE
  9. PRENATAL VITAMINS                  /02014401/ [Concomitant]
     Active Substance: VITAMINS
  10. LORATADINE. [Concomitant]
     Active Substance: LORATADINE
  11. PROCHLORPERAZINE. [Concomitant]
     Active Substance: PROCHLORPERAZINE
  12. MICONAZOLE. [Concomitant]
     Active Substance: MICONAZOLE
  13. METOCLOPRAMIDE. [Concomitant]
     Active Substance: METOCLOPRAMIDE
  14. CEFAZOLIN [Concomitant]
     Active Substance: CEFAZOLIN
  15. METHADONE [Suspect]
     Active Substance: METHADONE HYDROCHLORIDE
     Indication: SUBSTANCE USE DISORDER
     Dosage: 10 MG, UNK
     Route: 064
     Dates: start: 20161206, end: 20170913
  16. AZITHROMYCIN ANHYDROUS. [Concomitant]
     Active Substance: AZITHROMYCIN ANHYDROUS

REACTIONS (6)
  - Drug withdrawal syndrome neonatal [Unknown]
  - Foetal exposure during pregnancy [Recovered/Resolved]
  - ABO incompatibility [Unknown]
  - Hyperbilirubinaemia neonatal [Recovered/Resolved]
  - Weight decrease neonatal [Recovered/Resolved]
  - Foetal heart rate abnormal [Unknown]

NARRATIVE: CASE EVENT DATE: 20161206
